FAERS Safety Report 5344500-9 (Version None)
Quarter: 2007Q2

REPORT INFORMATION
  Report Type: 
  Country: None (occurrence: None)
  Receive Date: 20070604
  Receipt Date: 20070523
  Transmission Date: 20071010
  Serious: Yes (Hospitalization)
  Sender: FDA-Public Use
  Company Number: JP-PFIZER INC-2007033050

PATIENT
  Sex: Female
  Weight: 63.8 kg

DRUGS (11)
  1. CABASER [Suspect]
     Indication: PARKINSON'S DISEASE
     Route: 048
  2. CABASER [Suspect]
     Indication: MULTIPLE SYSTEM ATROPHY
  3. MENESIT [Concomitant]
     Route: 048
  4. SYMMETREL [Concomitant]
     Route: 048
  5. LAFUTIDINE [Concomitant]
     Route: 048
     Dates: start: 20041202
  6. NAUZELIN [Concomitant]
     Route: 048
     Dates: start: 20041202
  7. PRAMIPEXOLE DIHYDROCHLORIDE [Concomitant]
     Route: 048
  8. LENDORMIN [Concomitant]
     Route: 048
     Dates: start: 20041215
  9. ALOSENN [Concomitant]
     Route: 048
     Dates: start: 20050520
  10. KETOPROFEN [Concomitant]
     Route: 062
  11. DIGESTIVES, INCL ENZYMES [Concomitant]
     Route: 048

REACTIONS (1)
  - AORTIC VALVE STENOSIS [None]
